FAERS Safety Report 19700005 (Version 1)
Quarter: 2021Q3

REPORT INFORMATION
  Report Type: Spontaneous
  Country: JP (occurrence: JP)
  Receive Date: 20210813
  Receipt Date: 20210813
  Transmission Date: 20211014
  Serious: Yes (Other)
  Sender: FDA-Public Use
  Company Number: JP-SPECGX-T202101883

PATIENT
  Age: 45 Year
  Sex: Female

DRUGS (6)
  1. OXYCODONE HYDROCHLORIDE TRIHYDRATE. [Concomitant]
     Active Substance: OXYCODONE HYDROCHLORIDE TRIHYDRATE
     Indication: PRODUCT USED FOR UNKNOWN INDICATION
     Dosage: 80 MILLIGRAM, QD
     Route: 065
  2. FENTANYL CITRATE. [Concomitant]
     Active Substance: FENTANYL CITRATE
     Indication: PRODUCT USED FOR UNKNOWN INDICATION
     Dosage: UNK
     Route: 042
  3. REMIFENTANIL HYDROCHLORIDE. [Concomitant]
     Active Substance: REMIFENTANIL HYDROCHLORIDE
     Indication: PRODUCT USED FOR UNKNOWN INDICATION
     Dosage: UNK (0.4 MCG/KG/MIN)
     Route: 042
  4. KETAMINE HYDROCHLORIDE. [Concomitant]
     Active Substance: KETAMINE HYDROCHLORIDE
     Indication: PRODUCT USED FOR UNKNOWN INDICATION
     Dosage: 25 MILLIGRAM
     Route: 042
  5. METHADONE [Suspect]
     Active Substance: METHADONE HYDROCHLORIDE
     Indication: CANCER PAIN
     Dosage: 105 MILLIGRAM
     Route: 048
  6. OXYCODONE HYDROCHLORIDE TRIHYDRATE. [Concomitant]
     Active Substance: OXYCODONE HYDROCHLORIDE TRIHYDRATE
     Dosage: 40 MILLIGRAM, PRN
     Route: 065

REACTIONS (5)
  - Femur fracture [Unknown]
  - Internal fixation of fracture [Unknown]
  - Hypertension [Recovered/Resolved]
  - Hyperaesthesia [Unknown]
  - Drug resistance [Unknown]
